FAERS Safety Report 23945794 (Version 4)
Quarter: 2024Q3

REPORT INFORMATION
  Report Type: Spontaneous
  Country: GR (occurrence: GR)
  Receive Date: 20240606
  Receipt Date: 20240826
  Transmission Date: 20241017
  Serious: No
  Sender: PFIZER
  Company Number: GR-PFIZER INC-PV202400072475

PATIENT
  Age: 8 Year
  Sex: Male
  Weight: 23 kg

DRUGS (2)
  1. GENOTROPIN [Suspect]
     Active Substance: SOMATROPIN
     Indication: Dwarfism
     Dosage: 0.7MGX4 DAYS, 0.6MGX2 DAYS / 6 DAYS (1 DAY OFF) / 5.3 MG PEN
     Route: 058
     Dates: start: 20240121
  2. GENOTROPIN [Suspect]
     Active Substance: SOMATROPIN
     Indication: Growth hormone deficiency
     Dosage: 0.7MGX4 DAYS, 0.6MGX2 DAYS / 6 DAYS (1 DAY OFF) / 5.3 MG PEN
     Route: 058
     Dates: start: 20240121

REACTIONS (2)
  - Drug dose omission by device [Unknown]
  - Device leakage [Unknown]

NARRATIVE: CASE EVENT DATE: 20240530
